FAERS Safety Report 10172773 (Version 1)
Quarter: 2014Q2

REPORT INFORMATION
  Report Type: Spontaneous
  Country: US (occurrence: None)
  Receive Date: 20140513
  Receipt Date: 20140513
  Transmission Date: 20141212
  Serious: Yes (Hospitalization)
  Sender: FDA-Public Use
  Company Number: IPC201404-000213

PATIENT
  Sex: Female
  Weight: 52 kg

DRUGS (5)
  1. HYDROXYCHLOROQUINE SULFATE (HYDROXYCHLOROQUINE SULFATE) (HYDROXYCHLOROQUINE SULFATE) [Suspect]
     Indication: JUVENILE IDIOPATHIC ARTHRITIS
     Route: 048
     Dates: start: 20131115
  2. SEROQUEL (QUETIAPINE), 50 MG [Concomitant]
  3. MIRTAZAPINE [Concomitant]
  4. CLONAZEPAM [Concomitant]
  5. ZANAFLEX (TIZANIDINE) [Concomitant]

REACTIONS (1)
  - Gastrointestinal disorder [None]
